FAERS Safety Report 13221626 (Version 1)
Quarter: 2017Q1

REPORT INFORMATION
  Report Type: Other
  Country: US (occurrence: US)
  Receive Date: 20170211
  Receipt Date: 20170211
  Transmission Date: 20170428
  Serious: No
  Sender: FDA-Public Use
  Company Number: US-ACORDA-ACO_131289_2016

PATIENT
  Sex: Female

DRUGS (1)
  1. AMPYRA [Suspect]
     Active Substance: DALFAMPRIDINE
     Indication: PRODUCT USED FOR UNKNOWN INDICATION
     Dosage: 10 MG, BID
     Route: 048
     Dates: start: 2015

REACTIONS (6)
  - Walking aid user [Unknown]
  - Disturbance in attention [Unknown]
  - Reading disorder [Unknown]
  - Peroneal nerve palsy [Unknown]
  - Vision blurred [None]
  - Multiple sclerosis relapse [Unknown]
